FAERS Safety Report 7229563-8 (Version None)
Quarter: 2011Q1

REPORT INFORMATION
  Report Type: 
  Country: None (occurrence: None)
  Receive Date: 20110117
  Receipt Date: 20100818
  Transmission Date: 20110831
  Serious: Yes (Other)
  Sender: FDA-Public Use
  Company Number: US-TYCO HEALTHCARE/MALLINCKRODT-T201001825

PATIENT
  Sex: Female

DRUGS (1)
  1. OPTIRAY 350 [Suspect]
     Indication: COMPUTERISED TOMOGRAM
     Dosage: 100 ML, SINGLE
     Route: 042
     Dates: start: 20100818, end: 20100818

REACTIONS (7)
  - HYPOTENSION [None]
  - FACE OEDEMA [None]
  - THROAT IRRITATION [None]
  - URTICARIA [None]
  - PHARYNGEAL OEDEMA [None]
  - PRURITUS [None]
  - EYE PRURITUS [None]
